FAERS Safety Report 7207326-7 (Version None)
Quarter: 2011Q1

REPORT INFORMATION
  Report Type: 
  Country: None (occurrence: None)
  Receive Date: 20110103
  Receipt Date: 20101231
  Transmission Date: 20110831
  Serious: Yes (Death, Hospitalization, Other)
  Sender: FDA-Public Use
  Company Number: IT-BRISTOL-MYERS SQUIBB COMPANY-15442585

PATIENT
  Age: 85 Year
  Sex: Female

DRUGS (11)
  1. ZYLORIC [Suspect]
     Indication: HYPERURICAEMIA
     Dosage: FORMULATION:ZYLORIC 300 MG ORAL TABS. 1 DF:1 UNIT
     Route: 048
     Dates: start: 20100101, end: 20101210
  2. KLACID [Suspect]
     Indication: PNEUMONITIS
     Dosage: FORMULATION:KLACID 500 MG ORAL TABS 2 UNITS PER DAY
     Route: 048
     Dates: start: 20101206, end: 20101210
  3. NITRODERM [Concomitant]
  4. OMEPRAZOLE [Concomitant]
  5. CONGESCOR [Concomitant]
     Dosage: FORMULATION:TABS
  6. LASIX [Concomitant]
  7. COUMADIN [Suspect]
     Indication: PROPHYLAXIS
     Dosage: INTER ON 07DEC2010
     Dates: start: 20070101
  8. ALDACTONE [Concomitant]
     Dosage: FORMULATION:CAPS
     Route: 048
  9. HUMULIN I [Concomitant]
     Dosage: STRENGTH:100 U/ML
  10. ROCEPHIN [Concomitant]
     Indication: PNEUMONITIS
     Route: 042
     Dates: start: 20101206, end: 20101210
  11. HUMULIN R [Concomitant]
     Dosage: STRENGTH:100 U/ML

REACTIONS (5)
  - INTERNATIONAL NORMALISED RATIO INCREASED [None]
  - CARDIAC FAILURE [None]
  - RESPIRATORY FAILURE [None]
  - BRONCHOPNEUMONIA [None]
  - HYPERURICAEMIA [None]
